FAERS Safety Report 5939163-5 (Version None)
Quarter: 2008Q4

REPORT INFORMATION
  Report Type: 
  Country: None (occurrence: None)
  Receive Date: 20081103
  Receipt Date: 20081023
  Transmission Date: 20090506
  Serious: Yes (Other)
  Sender: FDA-Public Use
  Company Number: AU-PFIZER INC-2008083278

PATIENT
  Age: 65 Year
  Sex: Male

DRUGS (6)
  1. LIPITOR [Suspect]
     Dosage: FREQ:NOCTE
  2. LANOXIN [Concomitant]
  3. INDERAL [Concomitant]
  4. TRITACE [Concomitant]
  5. ATACAND [Concomitant]
  6. WARFARIN SODIUM [Concomitant]

REACTIONS (3)
  - ARTHRALGIA [None]
  - IMPAIRED WORK ABILITY [None]
  - TENDON RUPTURE [None]
